FAERS Safety Report 18723689 (Version 1)
Quarter: 2021Q1

REPORT INFORMATION
  Report Type: Spontaneous
  Country: US (occurrence: US)
  Receive Date: 20210108
  Receipt Date: 20210108
  Transmission Date: 20210419
  Serious: No
  Sender: FDA-Public Use
  Company Number: None

PATIENT
  Sex: Female

DRUGS (2)
  1. IBRANCE [Suspect]
     Active Substance: PALBOCICLIB
     Indication: BREAST CANCER
     Dosage: OTHER FREQUENCY:DAILY 21/28;?
     Route: 048
     Dates: start: 20161213
  2. IBRANCE [Suspect]
     Active Substance: PALBOCICLIB
     Indication: ANAEMIA
     Dosage: OTHER FREQUENCY:DAILY 21/28;?
     Route: 048
     Dates: start: 20161213

REACTIONS (1)
  - Drug ineffective [None]
